FAERS Safety Report 7968197-4 (Version None)
Quarter: 2011Q4

REPORT INFORMATION
  Report Type: 
  Country: None (occurrence: None)
  Receive Date: 20111209
  Receipt Date: 20111202
  Transmission Date: 20120403
  Serious: Yes (Other)
  Sender: FDA-Public Use
  Company Number: PHHY2011JP75822

PATIENT
  Sex: Female

DRUGS (9)
  1. CEFACLOR [Suspect]
     Indication: BACTERIAL INFECTION
     Dosage: 250 MG, TID
     Route: 048
     Dates: start: 20110301, end: 20110303
  2. CODEINE PHOSPHATE HEMIHYDRATE [Concomitant]
     Indication: PAIN
     Dosage: 20 MG, UNK
     Route: 048
     Dates: start: 20110223, end: 20110225
  3. AMOXICILLIN [Concomitant]
     Indication: BACTERIAL INFECTION
     Dosage: 1 G, UNK
     Route: 048
     Dates: start: 20110303, end: 20110305
  4. LOXONIN [Suspect]
     Indication: ANTIPYRESIS
     Dosage: 60 MG, DAILY
     Route: 048
     Dates: start: 20110222, end: 20110303
  5. MOTILIUM [Concomitant]
     Indication: PROPHYLAXIS OF NAUSEA AND VOMITING
     Dosage: 10 MG, UNK
     Route: 048
     Dates: start: 20110224, end: 20110228
  6. VOLTAREN [Suspect]
     Indication: ANTIPYRESIS
     Dosage: 25 MG, ONE SUPPOSITORY DAILY
     Route: 054
     Dates: start: 20110223, end: 20110228
  7. MAGMITT [Concomitant]
     Indication: CONSTIPATION
     Dosage: 750 MG, UNK
     Route: 048
     Dates: start: 20110223, end: 20110304
  8. CEFAZOLIN SODIUM [Suspect]
     Indication: BACTERIAL INFECTION
     Dosage: 1 MG, TID
     Dates: start: 20010224, end: 20110228
  9. MUCOSTA [Concomitant]
     Indication: PROPHYLAXIS
     Dosage: 100 MG, UNK
     Route: 048
     Dates: start: 20110222, end: 20110302

REACTIONS (7)
  - C-REACTIVE PROTEIN INCREASED [None]
  - GAMMA-GLUTAMYLTRANSFERASE INCREASED [None]
  - WHITE BLOOD CELL COUNT INCREASED [None]
  - ASPARTATE AMINOTRANSFERASE INCREASED [None]
  - BLOOD CREATINE PHOSPHOKINASE DECREASED [None]
  - GRANULOCYTOPENIA [None]
  - INFLAMMATION [None]
